FAERS Safety Report 11757029 (Version 2)
Quarter: 2015Q4

REPORT INFORMATION
  Report Type: Spontaneous
  Country: US (occurrence: US)
  Receive Date: 20151120
  Receipt Date: 20151128
  Transmission Date: 20160304
  Serious: Yes (Hospitalization)
  Sender: FDA-Public Use
  Company Number: US-SUN PHARMACEUTICAL INDUSTRIES LTD-2015US-106284

PATIENT
  Age: 61 Year
  Sex: Male

DRUGS (3)
  1. DOCETAXEL. [Suspect]
     Active Substance: DOCETAXEL
     Indication: TONSIL CANCER
     Dosage: UNK
     Route: 065
  2. 5 FLUROURACIL [Concomitant]
     Active Substance: FLUOROURACIL
     Indication: PRODUCT USED FOR UNKNOWN INDICATION
     Dosage: UNK
     Route: 065
  3. CISPLATIN. [Concomitant]
     Active Substance: CISPLATIN
     Indication: PRODUCT USED FOR UNKNOWN INDICATION
     Dosage: UNK
     Route: 065

REACTIONS (9)
  - Bacteraemia [None]
  - Traumatic lung injury [Recovered/Resolved]
  - Pulmonary toxicity [None]
  - Brain natriuretic peptide increased [None]
  - Pneumonia [None]
  - Renal failure [Recovering/Resolving]
  - Respiratory alkalosis [None]
  - Fluid overload [None]
  - Febrile neutropenia [None]
